FAERS Safety Report 8872134 (Version 4)
Quarter: 2013Q1

REPORT INFORMATION
  Report Type: Spontaneous
  Country: US (occurrence: US)
  Receive Date: 20121030
  Receipt Date: 20130103
  Transmission Date: 20140127
  Serious: No
  Sender: FDA-Public Use
  Company Number: US-VERTEX PHARMACEUTICAL INC.-2012-023469

PATIENT
  Age: 34 None
  Sex: Male
  Weight: 105 kg

DRUGS (3)
  1. INCIVEK [Suspect]
     Indication: HEPATITIS C
     Dosage: 750 MG, TID
     Route: 048
     Dates: start: 20121016
  2. RIBAVIRIN [Suspect]
     Indication: HEPATITIS C
     Dosage: 600 MG AM, 800 MG PM
     Route: 048
     Dates: start: 20121016
  3. PEGASYS [Suspect]
     Indication: HEPATITIS C
     Dosage: 180 ?G, WKLY
     Route: 058
     Dates: start: 20121016

REACTIONS (24)
  - Wrong technique in drug usage process [Recovered/Resolved]
  - Palpitations [Unknown]
  - Depression [Unknown]
  - Dyspnoea [Unknown]
  - Dizziness [Recovered/Resolved]
  - Hypoaesthesia [Unknown]
  - Nasopharyngitis [Unknown]
  - Nasal congestion [Unknown]
  - Weight increased [Unknown]
  - Headache [Not Recovered/Not Resolved]
  - Dyspepsia [Unknown]
  - Feeling abnormal [Unknown]
  - Decreased interest [Unknown]
  - Pyrexia [Unknown]
  - Fatigue [Unknown]
  - Asthenia [Unknown]
  - Haemorrhoids [Unknown]
  - Diarrhoea [Recovered/Resolved]
  - Proctalgia [Unknown]
  - Anorectal discomfort [Unknown]
  - Anal pruritus [Recovered/Resolved]
  - Vomiting [Recovered/Resolved]
  - Nausea [Unknown]
  - Anaemia [Unknown]
